FAERS Safety Report 7714539-4 (Version None)
Quarter: 2011Q3

REPORT INFORMATION
  Report Type: 
  Country: None (occurrence: None)
  Receive Date: 20110829
  Receipt Date: 20110818
  Transmission Date: 20111222
  Serious: Yes (Other)
  Sender: FDA-Public Use
  Company Number: JP-JNJFOC-20110809836

PATIENT
  Age: 43 Year
  Sex: Male
  Weight: 63 kg

DRUGS (12)
  1. ACETAMINOPHEN [Concomitant]
     Indication: PROPHYLAXIS
     Route: 048
  2. TALION [Concomitant]
     Indication: PROPHYLAXIS
     Route: 048
  3. REMICADE [Suspect]
     Route: 042
     Dates: start: 20100811
  4. ADEROXAL [Concomitant]
     Indication: PROPHYLAXIS
     Route: 048
  5. REMICADE [Suspect]
     Route: 042
     Dates: start: 20100713
  6. REMICADE [Suspect]
     Route: 042
     Dates: start: 20101201
  7. ISONIAZID [Concomitant]
     Indication: ANTIBIOTIC PROPHYLAXIS
  8. REMICADE [Suspect]
     Route: 042
     Dates: start: 20101006
  9. DOVONEX [Concomitant]
     Indication: PUSTULAR PSORIASIS
     Route: 003
  10. REMICADE [Suspect]
     Dosage: TOTAL 6 INFUSIONS
     Route: 042
     Dates: start: 20110126
  11. REMICADE [Suspect]
     Indication: PUSTULAR PSORIASIS
     Route: 042
     Dates: start: 20100630
  12. CYCLOSPORINE [Concomitant]
     Indication: PUSTULAR PSORIASIS
     Route: 048

REACTIONS (1)
  - PYOGENIC GRANULOMA [None]
